FAERS Safety Report 5233923-4 (Version None)
Quarter: 2007Q1

REPORT INFORMATION
  Report Type: 
  Country: None (occurrence: None)
  Receive Date: 20070208
  Receipt Date: 20070126
  Transmission Date: 20070707
  Serious: Yes (Disabling, Congenital Anomaly, Other)
  Sender: FDA-Public Use
  Company Number: ZA-BRISTOL-MYERS SQUIBB COMPANY-13559935

PATIENT
  Age: 37 Week
  Sex: Male

DRUGS (7)
  1. EFAVIRENZ [Suspect]
     Indication: HIV INFECTION
     Route: 064
     Dates: start: 20050223, end: 20051229
  2. VIRAMUNE [Suspect]
     Route: 064
     Dates: start: 20051229
  3. RETROVIR [Suspect]
     Route: 064
     Dates: start: 20051229
  4. EPIVIR [Concomitant]
     Route: 064
     Dates: start: 20050223
  5. ZERIT [Concomitant]
     Route: 064
     Dates: start: 20050223, end: 20051229
  6. BACTRIM [Concomitant]
  7. VITAMIN B COMPLEX CAP [Concomitant]

REACTIONS (5)
  - CONGENITAL ANOMALY [None]
  - DRUG EXPOSURE DURING PREGNANCY [None]
  - NOSE DEFORMITY [None]
  - PREMATURE BABY [None]
  - TALIPES [None]
